FAERS Safety Report 19158536 (Version 1)
Quarter: 2021Q2

REPORT INFORMATION
  Report Type: Spontaneous
  Country: GB (occurrence: GB)
  Receive Date: 20210420
  Receipt Date: 20210420
  Transmission Date: 20210717
  Serious: Yes (Other)
  Sender: FDA-Public Use
  Company Number: GB-ROCHE-2810962

PATIENT
  Age: 77 Year
  Sex: Male

DRUGS (7)
  1. VENETOCLAX. [Suspect]
     Active Substance: VENETOCLAX
     Dosage: WEEK THREE
     Route: 048
     Dates: start: 2019, end: 2019
  2. VENETOCLAX. [Suspect]
     Active Substance: VENETOCLAX
     Dosage: WEEK FOUR
     Route: 048
     Dates: start: 2019, end: 2019
  3. RITUXIMAB. [Suspect]
     Active Substance: RITUXIMAB
     Indication: CHRONIC LYMPHOCYTIC LEUKAEMIA
     Dosage: DAY ONE OF EACH CYCLE
     Route: 065
     Dates: start: 2019, end: 202004
  4. VENETOCLAX. [Suspect]
     Active Substance: VENETOCLAX
     Indication: CHRONIC LYMPHOCYTIC LEUKAEMIA
     Route: 048
     Dates: start: 2019
  5. VENETOCLAX. [Suspect]
     Active Substance: VENETOCLAX
     Dosage: WEEK TWO
     Route: 048
     Dates: start: 2019, end: 2019
  6. RITUXIMAB. [Suspect]
     Active Substance: RITUXIMAB
     Dosage: DAY ONE
     Route: 065
     Dates: start: 20190730
  7. VENETOCLAX. [Suspect]
     Active Substance: VENETOCLAX
     Dosage: WEEK ONE
     Route: 048
     Dates: start: 20190730, end: 2019

REACTIONS (4)
  - Lung adenocarcinoma [Unknown]
  - COVID-19 [Unknown]
  - Platelet count abnormal [Unknown]
  - Chronic lymphocytic leukaemia [Unknown]

NARRATIVE: CASE EVENT DATE: 201912
